FAERS Safety Report 21151170 (Version 1)
Quarter: 2022Q3

REPORT INFORMATION
  Report Type: Spontaneous
  Country: HR (occurrence: HR)
  Receive Date: 20220730
  Receipt Date: 20220730
  Transmission Date: 20221026
  Serious: Yes (Other)
  Sender: FDA-Public Use
  Company Number: None

PATIENT
  Sex: Female

DRUGS (2)
  1. QUETIAPINE [Suspect]
     Active Substance: QUETIAPINE
     Indication: Product used for unknown indication
     Dosage: UNKNOWN, FREQUENCY TIME : 1 DAY, UNIT DOSE: 1500 MG, QUETIAPINA
     Dates: start: 20220617, end: 20220617
  2. MIRTAZAPINE [Suspect]
     Active Substance: MIRTAZAPINE
     Indication: Product used for unknown indication
     Dosage: FREQUENCY TIME : 1 DAY, UNIT DOSE: 450 MG
     Dates: start: 20220617, end: 20220617

REACTIONS (2)
  - Suicide attempt [Unknown]
  - Tachycardia [Recovered/Resolved]

NARRATIVE: CASE EVENT DATE: 20220617
